FAERS Safety Report 12460679 (Version 1)
Quarter: 2016Q2

REPORT INFORMATION
  Report Type: Spontaneous
  Country: BR (occurrence: BR)
  Receive Date: 20160613
  Receipt Date: 20160613
  Transmission Date: 20160815
  Serious: Yes (Other)
  Sender: FDA-Public Use
  Company Number: BR-PFIZER INC-2016291131

PATIENT
  Age: 89 Year
  Sex: Female

DRUGS (2)
  1. LYRICA [Suspect]
     Active Substance: PREGABALIN
     Dosage: UNK
     Route: 048
     Dates: start: 2013, end: 2013
  2. LYRICA [Suspect]
     Active Substance: PREGABALIN
     Indication: SPINAL PAIN
     Dosage: 75 MG, 2X/DAY (EVERY 12 HOURS)
     Route: 048
     Dates: start: 20120409

REACTIONS (2)
  - Spinal column injury [Unknown]
  - Osteoporosis [Unknown]
